FAERS Safety Report 8331449-2 (Version None)
Quarter: 2012Q2

REPORT INFORMATION
  Report Type: 
  Country: None (occurrence: None)
  Receive Date: 20120502
  Receipt Date: 20120417
  Transmission Date: 20120825
  Serious: No
  Sender: FDA-Public Use
  Company Number: US-AMGEN-USASP2012024261

PATIENT
  Age: 72 Year
  Sex: Female

DRUGS (2)
  1. ENBREL [Suspect]
     Indication: RHEUMATOID ARTHRITIS
     Dosage: 50 MG, QWK
     Dates: start: 20060828
  2. TREXALL [Concomitant]
     Dosage: 1 MG, UNK
     Dates: start: 20060828

REACTIONS (5)
  - FATIGUE [None]
  - INJECTION SITE PAIN [None]
  - MEDICATION ERROR [None]
  - JOINT SWELLING [None]
  - URINARY TRACT INFECTION [None]
